FAERS Safety Report 11995502 (Version 2)
Quarter: 2016Q2

REPORT INFORMATION
  Report Type: Spontaneous
  Country: US (occurrence: US)
  Receive Date: 20160203
  Receipt Date: 20160616
  Transmission Date: 20160815
  Serious: Yes (Hospitalization, Disabling, Other)
  Sender: FDA-Public Use
  Company Number: US-ENDO PHARMACEUTICALS INC.-2016-000788

PATIENT
  Age: 69 Year
  Sex: Male
  Weight: 79.45 kg

DRUGS (2)
  1. TESTIM [Suspect]
     Active Substance: TESTOSTERONE
     Indication: ANDROGEN REPLACEMENT THERAPY
     Route: 062
     Dates: start: 200708, end: 201412
  2. DELATESTRYL [Suspect]
     Active Substance: TESTOSTERONE ENANTHATE
     Indication: ANDROGEN REPLACEMENT THERAPY
     Route: 030
     Dates: start: 2007, end: 2014

REACTIONS (21)
  - Labile hypertension [Unknown]
  - Bradycardia [Unknown]
  - Pain [Unknown]
  - Chest pain [Unknown]
  - Balance disorder [Unknown]
  - Atrial fibrillation [Unknown]
  - Retinal ischaemia [Not Recovered/Not Resolved]
  - Nausea [Unknown]
  - Pulmonary embolism [Unknown]
  - Blindness unilateral [Not Recovered/Not Resolved]
  - Abdominal pain [Unknown]
  - General physical health deterioration [Unknown]
  - Toxic encephalopathy [Recovered/Resolved]
  - Syncope [Unknown]
  - Quality of life decreased [Unknown]
  - Retinal haemorrhage [Not Recovered/Not Resolved]
  - Retinal vein occlusion [Unknown]
  - Chest pain [Unknown]
  - Emotional distress [Unknown]
  - Cerebrovascular accident [Unknown]
  - Vomiting [Unknown]

NARRATIVE: CASE EVENT DATE: 20100706
